FAERS Safety Report 8954168 (Version 2)
Quarter: 2013Q3

REPORT INFORMATION
  Report Type: Report from Study
  Country: JP (occurrence: JP)
  Receive Date: 20121207
  Receipt Date: 20130806
  Transmission Date: 20140515
  Serious: Yes (Other)
  Sender: FDA-Public Use
  Company Number: JP-VERTEX PHARMACEUTICALS INC.-AE-2012-008709

PATIENT
  Age: 56 Year
  Sex: Male

DRUGS (7)
  1. VX-950 (TELAPREVIR) [Suspect]
     Indication: CHRONIC HEPATITIS C
     Dosage: 2250 MG, QD
     Route: 048
     Dates: start: 20120214, end: 20120226
  2. RIBAVIRIN [Suspect]
     Indication: CHRONIC HEPATITIS C
     Dosage: 800 MG, QD
     Route: 048
     Dates: start: 20120214, end: 20120226
  3. PEGINTERFERON ALFA-2B [Suspect]
     Indication: CHRONIC HEPATITIS C
     Dosage: 1.3 ?G/KG, QW
     Route: 058
     Dates: start: 20120214, end: 20120221
  4. ACINON [Concomitant]
     Dosage: 300 MG, QD
     Route: 048
     Dates: start: 20120214, end: 20120226
  5. CALONAL [Concomitant]
     Dosage: 400 MG, QD/PRN
     Route: 048
     Dates: start: 20120214, end: 20120219
  6. UBIRON [Concomitant]
     Dosage: 600 MG, QD
     Route: 048
     Dates: start: 20120227
  7. EPADEL-S [Concomitant]
     Dosage: 1200 MG, QD
     Route: 048
     Dates: start: 20120214, end: 20120226

REACTIONS (1)
  - Rectal cancer [Recovered/Resolved]
